FAERS Safety Report 4278921-2 (Version None)
Quarter: 2004Q1

REPORT INFORMATION
  Report Type: 
  Country: None (occurrence: None)
  Receive Date: 20040126
  Receipt Date: 20040116
  Transmission Date: 20041129
  Serious: Yes (Other)
  Sender: FDA-Public Use
  Company Number: PHBS2004SE00958

PATIENT
  Age: 44 Year
  Sex: Female

DRUGS (16)
  1. NEORAL [Suspect]
     Indication: RHEUMATOID ARTHRITIS
     Dosage: 150 MG/DAY
     Route: 048
     Dates: start: 20010101
  2. NEORAL [Suspect]
     Dosage: 100 MG/D
     Route: 048
     Dates: start: 20020201
  3. PREDNISOLONE [Concomitant]
     Dosage: 5 MG/D
  4. PREDNISOLONE [Concomitant]
     Dosage: 2.5 MG TWICE/WEEK
  5. PREDNISOLONE [Concomitant]
     Dosage: 5 MG 5 TIMES/WEEK
  6. WARAN [Concomitant]
     Dosage: 2.5 MG ACCORDING TO SCHEDULE
     Dates: start: 20030101
  7. METHOTREXATE [Concomitant]
     Dosage: 2.5 MG/D
  8. LOSEC MUPS [Concomitant]
     Dosage: 40 MG/D
  9. FOLACIN [Concomitant]
     Dosage: 5 MG 3 TIMES/WEEK
  10. KALCIPOS-D [Concomitant]
  11. ATENOLOL [Concomitant]
     Dosage: 50 MG/D
  12. ACETAMINOPHEN [Concomitant]
     Dosage: UNK, PRN
  13. TRAMADOL HCL [Concomitant]
     Dosage: UNK, PRN
  14. ATARAX [Concomitant]
     Dosage: 25 MG/D
  15. ERCO-FER [Concomitant]
     Dosage: 60 MG/D
     Dates: start: 20030101
  16. NOVALUZID [Concomitant]
     Dosage: UNK, PRN

REACTIONS (4)
  - CUSHINGOID [None]
  - HYPERTENSION [None]
  - PULMONARY EMBOLISM [None]
  - WEIGHT INCREASED [None]
